FAERS Safety Report 5256100-X (Version None)
Quarter: 2007Q1

REPORT INFORMATION
  Report Type: 
  Country: None (occurrence: None)
  Receive Date: 20070306
  Receipt Date: 20070221
  Transmission Date: 20070707
  Serious: Yes (Hospitalization, Other)
  Sender: FDA-Public Use
  Company Number: PHBS2007JP03515

PATIENT
  Age: 23 Year
  Sex: Female

DRUGS (2)
  1. TOFRANIL [Suspect]
     Dosage: 25 MG, ONCE/SINGLE
     Route: 048
     Dates: start: 19990313, end: 19990313
  2. HALCION [Suspect]
     Dosage: 10 TABS OF 0.25 MG
     Route: 048
     Dates: start: 19990313, end: 19990313

REACTIONS (15)
  - BLOOD ALBUMIN DECREASED [None]
  - BLOOD BLISTER [None]
  - BLOOD CHOLESTEROL DECREASED [None]
  - COMA [None]
  - ERYTHEMA [None]
  - OVERDOSE [None]
  - PROTEIN TOTAL DECREASED [None]
  - RASH [None]
  - SKIN EROSION [None]
  - SKIN GRAFT [None]
  - SKIN GRAFT INFECTION [None]
  - SKIN HAEMORRHAGE [None]
  - SKIN NECROSIS [None]
  - WHITE BLOOD CELL COUNT INCREASED [None]
  - WOUND DEBRIDEMENT [None]
